FAERS Safety Report 8572470-9 (Version None)
Quarter: 2012Q3

REPORT INFORMATION
  Report Type: 
  Country: None (occurrence: None)
  Receive Date: 20120806
  Receipt Date: 20100301
  Transmission Date: 20120928
  Serious: Yes (Other)
  Sender: FDA-Public Use
  Company Number: NZ-ROCHE-1092053

PATIENT
  Sex: Female

DRUGS (2)
  1. PEGASYS [Suspect]
     Indication: HEPATITIS C
     Route: 065
  2. COPEGUS [Suspect]
     Indication: HEPATITIS C
     Route: 065

REACTIONS (6)
  - DEPRESSION [None]
  - HAEMOLYTIC ANAEMIA [None]
  - INSOMNIA [None]
  - NO THERAPEUTIC RESPONSE [None]
  - ECZEMA [None]
  - ANGER [None]
